FAERS Safety Report 26011032 (Version 1)
Quarter: 2025Q4

REPORT INFORMATION
  Report Type: Spontaneous
  Country: US (occurrence: None)
  Receive Date: 20251107
  Receipt Date: 20251107
  Transmission Date: 20260117
  Serious: Yes (Hospitalization)
  Sender: FDA-CTU
  Company Number: None

PATIENT
  Age: 71 Year
  Sex: Male
  Weight: 91.2 kg

DRUGS (2)
  1. DARATUMUMAB\HYALURONIDASE-FIHJ [Suspect]
     Active Substance: DARATUMUMAB\HYALURONIDASE-FIHJ
     Dates: end: 20251002
  2. LENALIDOMIDE [Suspect]
     Active Substance: LENALIDOMIDE

REACTIONS (7)
  - Ocular hyperaemia [None]
  - Sinusitis [None]
  - Periorbital swelling [None]
  - Periorbital cellulitis [None]
  - Inflammation [None]
  - Therapy interrupted [None]
  - Conjunctival oedema [None]

NARRATIVE: CASE EVENT DATE: 20251027
